FAERS Safety Report 24303610 (Version 2)
Quarter: 2024Q4

REPORT INFORMATION
  Report Type: Spontaneous
  Country: JP (occurrence: JP)
  Receive Date: 20240910
  Receipt Date: 20241008
  Transmission Date: 20250115
  Serious: Yes (Death, Other)
  Sender: NOVARTIS
  Company Number: JP-002147023-NVSC2024JP178664

PATIENT
  Age: 61 Year
  Sex: Female

DRUGS (14)
  1. NEORAL [Suspect]
     Active Substance: CYCLOSPORINE
     Indication: Haemophagocytic lymphohistiocytosis
     Dosage: 200 MG, QD
     Route: 048
     Dates: start: 2021
  2. DEXAMETHASONE [Suspect]
     Active Substance: DEXAMETHASONE
     Indication: Haemophagocytic lymphohistiocytosis
     Dosage: 12 MG, QD
     Route: 065
     Dates: start: 2021
  3. ETOPOSIDE [Suspect]
     Active Substance: ETOPOSIDE
     Indication: Haemophagocytic lymphohistiocytosis
     Dosage: 200 MG, QW
     Route: 065
     Dates: start: 2021
  4. TOCILIZUMAB [Suspect]
     Active Substance: TOCILIZUMAB
     Indication: Haemophagocytic lymphohistiocytosis
     Dosage: 320 MG
     Route: 065
     Dates: start: 2021
  5. CYCLOPHOSPHAMIDE [Concomitant]
     Active Substance: CYCLOPHOSPHAMIDE
     Indication: Systemic lupus erythematosus
     Dosage: 8.45 G 13 COURSES
     Route: 042
  6. CYCLOPHOSPHAMIDE [Concomitant]
     Active Substance: CYCLOPHOSPHAMIDE
     Indication: Myelitis
  7. PREDNISOLONE [Concomitant]
     Active Substance: PREDNISOLONE
     Indication: Systemic lupus erythematosus
     Dosage: 7.5 MG, QD
     Route: 065
  8. PREDNISOLONE [Concomitant]
     Active Substance: PREDNISOLONE
     Indication: Myelitis
     Dosage: 60 MG, QD
     Route: 065
  9. TACROLIMUS [Concomitant]
     Active Substance: TACROLIMUS
     Indication: Systemic lupus erythematosus
     Dosage: 2.5 MG, QD
     Route: 065
  10. TACROLIMUS [Concomitant]
     Active Substance: TACROLIMUS
     Indication: Myelitis
  11. BELIMUMAB [Concomitant]
     Active Substance: BELIMUMAB
     Indication: Systemic lupus erythematosus
     Dosage: 200 MG, QW
     Route: 065
  12. BELIMUMAB [Concomitant]
     Active Substance: BELIMUMAB
     Indication: Myelitis
  13. METHYLPREDNISOLONE [Concomitant]
     Active Substance: METHYLPREDNISOLONE
     Indication: Systemic lupus erythematosus
     Dosage: 1000 MG, QD
     Route: 042
  14. METHYLPREDNISOLONE [Concomitant]
     Active Substance: METHYLPREDNISOLONE
     Indication: Myelitis

REACTIONS (3)
  - Pancytopenia [Fatal]
  - Haemophagocytic lymphohistiocytosis [Fatal]
  - Drug ineffective for unapproved indication [Unknown]

NARRATIVE: CASE EVENT DATE: 20210101
